FAERS Safety Report 6510676-0 (Version None)
Quarter: 2009Q4

REPORT INFORMATION
  Report Type: 
  Country: None (occurrence: None)
  Receive Date: 20091222
  Receipt Date: 20091016
  Transmission Date: 20100525
  Serious: No
  Sender: FDA-Public Use
  Company Number: US-ASTRAZENECA-2009SE20748

PATIENT
  Age: 55 Year
  Sex: Male
  Weight: 102.1 kg

DRUGS (2)
  1. CRESTOR [Suspect]
     Route: 048
     Dates: start: 20090914
  2. TEMOVATE [Concomitant]

REACTIONS (1)
  - POLLAKIURIA [None]
